FAERS Safety Report 24124409 (Version 2)
Quarter: 2024Q3

REPORT INFORMATION
  Report Type: Spontaneous
  Country: IT (occurrence: IT)
  Receive Date: 20240723
  Receipt Date: 20240926
  Transmission Date: 20241016
  Serious: Yes (Other)
  Sender: AUROBINDO
  Company Number: IT-DOCGEN-2404311

PATIENT
  Age: 79 Year
  Sex: Female

DRUGS (3)
  1. EZETIMIBE [Suspect]
     Active Substance: EZETIMIBE
     Indication: Dyslipidaemia
     Dosage: 10 MILLIGRAM
     Route: 065
     Dates: start: 201604
  2. ALIROCUMAB [Concomitant]
     Active Substance: ALIROCUMAB
     Indication: Dyslipidaemia
     Dosage: 150 MILLIGRAM
     Route: 065
  3. INCLISIRAN [Concomitant]
     Active Substance: INCLISIRAN
     Indication: Dyslipidaemia
     Dosage: UNK
     Route: 065

REACTIONS (2)
  - Drug intolerance [Unknown]
  - Nausea [Unknown]
